FAERS Safety Report 20661901 (Version 2)
Quarter: 2022Q4

REPORT INFORMATION
  Report Type: Spontaneous
  Country: FR (occurrence: FR)
  Receive Date: 20220401
  Receipt Date: 20221111
  Transmission Date: 20230112
  Serious: Yes (Hospitalization)
  Sender: FDA-Public Use
  Company Number: None

PATIENT
  Age: 72 Year
  Sex: Male
  Weight: 77.7 kg

DRUGS (15)
  1. TRISENOX [Suspect]
     Active Substance: ARSENIC TRIOXIDE
     Indication: Acute leukaemia
     Dosage: 10.9 MG, DURATION-20 DAYS
     Dates: start: 20220208, end: 20220228
  2. PROPRANOLOL [Suspect]
     Active Substance: PROPRANOLOL HYDROCHLORIDE
     Indication: Hyperthyroidism
     Dosage: UNIT DOSE : 80 MG   , FREQUENCY TIME : 1 DAY  , DURATION :  18 DAYS
     Dates: start: 20220209, end: 20220227
  3. AMIODARONE [Suspect]
     Active Substance: AMIODARONE
     Indication: Atrial fibrillation
     Dosage: 200 MG, FREQUENCY TIME- 1 DAY, DURATION-3 YEARS
     Route: 048
     Dates: start: 201911, end: 20220131
  4. VESANOID [Suspect]
     Active Substance: TRETINOIN
     Indication: Acute leukaemia
     Dosage: FORM STRENGTH: 10 MG, UNIT DOSE: 80 MG, FREQUENCY TIME- 1 DAY, DURATION-25 DAYS
     Route: 048
     Dates: start: 20220203, end: 20220228
  5. HYDREA [Suspect]
     Active Substance: HYDROXYUREA
     Indication: Differentiation syndrome
     Dosage: FORM STRENGTH : 500 MG  , UNIT DOSE :12 DF   , FREQUENCY TIME : 1 DAY  , DURATION :  14 DAYS
     Dates: start: 20220214, end: 20220228
  6. TAZOBACTAM [Concomitant]
     Active Substance: TAZOBACTAM
     Indication: Product used for unknown indication
  7. PHLOROGLUCINOL [Concomitant]
     Active Substance: PHLOROGLUCINOL
     Indication: Product used for unknown indication
     Dosage: (TRIMETHYL ETHER DU)
  8. METFORMIN HYDROCHLORIDE [Concomitant]
     Active Substance: METFORMIN HYDROCHLORIDE
     Indication: Product used for unknown indication
  9. VANCOMYCIN [Concomitant]
     Active Substance: VANCOMYCIN
     Indication: Product used for unknown indication
  10. PIPERACILLIN SODIUM [Concomitant]
     Active Substance: PIPERACILLIN SODIUM
     Indication: Product used for unknown indication
  11. JANUVIA [Concomitant]
     Active Substance: SITAGLIPTIN PHOSPHATE
     Indication: Product used for unknown indication
  12. SMECTA [Concomitant]
     Active Substance: MONTMORILLONITE
     Indication: Product used for unknown indication
  13. ALLOPURINOL [Concomitant]
     Active Substance: ALLOPURINOL
     Indication: Product used for unknown indication
  14. POSACONAZOLE [Concomitant]
     Active Substance: POSACONAZOLE
     Indication: Product used for unknown indication
  15. ELIQUIS [Concomitant]
     Active Substance: APIXABAN
     Indication: Product used for unknown indication
     Dosage: FORM STRENGTH : 5 MG

REACTIONS (2)
  - Differentiation syndrome [Recovered/Resolved with Sequelae]
  - Electrocardiogram QT prolonged [Recovered/Resolved]

NARRATIVE: CASE EVENT DATE: 20220208
